FAERS Safety Report 6612470-9 (Version None)
Quarter: 2010Q1

REPORT INFORMATION
  Report Type: 
  Country: None (occurrence: None)
  Receive Date: 20100303
  Receipt Date: 20100223
  Transmission Date: 20100710
  Serious: Yes (Other)
  Sender: FDA-Public Use
  Company Number: BR-PFIZER INC-2010023448

PATIENT
  Age: 30 Year
  Sex: Female
  Weight: 68 kg

DRUGS (3)
  1. DEPO-PROVERA [Suspect]
     Indication: CONTRACEPTION
     Dosage: 150 MG, EVERY 3 MONTHS
     Route: 030
     Dates: start: 20080101
  2. NOVALGINA [Concomitant]
     Indication: HEADACHE
     Dosage: UNK
  3. TYLENOL-500 [Concomitant]
     Indication: HEADACHE
     Dosage: UNK

REACTIONS (7)
  - ACNE [None]
  - AMENORRHOEA [None]
  - BREAST MASS [None]
  - FORMICATION [None]
  - MUSCLE SPASMS [None]
  - NAUSEA [None]
  - WEIGHT INCREASED [None]
